FAERS Safety Report 8135288-7 (Version None)
Quarter: 2012Q1

REPORT INFORMATION
  Report Type: 
  Country: None (occurrence: None)
  Receive Date: 20120214
  Receipt Date: 20111007
  Transmission Date: 20120608
  Serious: Yes (Other)
  Sender: FDA-Public Use
  Company Number: CA-JNJFOC-20120105864

PATIENT
  Sex: Male

DRUGS (3)
  1. PURINETHOL [Concomitant]
     Indication: COLITIS ULCERATIVE
     Route: 065
  2. REMICADE [Suspect]
     Dosage: DOSE:4 VIALS
     Route: 042
     Dates: start: 20101001
  3. REMICADE [Suspect]
     Indication: COLITIS ULCERATIVE
     Dosage: DOSE:7 VIALS
     Route: 042

REACTIONS (1)
  - HERNIA [None]
